FAERS Safety Report 23465187 (Version 5)
Quarter: 2024Q3

REPORT INFORMATION
  Report Type: Report from Study
  Country: IT (occurrence: IT)
  Receive Date: 20240201
  Receipt Date: 20240919
  Transmission Date: 20241017
  Serious: Yes (Other)
  Sender: ROCHE
  Company Number: IT-ROCHE-3486793

PATIENT
  Age: 71 Year
  Sex: Male
  Weight: 82.0 kg

DRUGS (13)
  1. GLOFITAMAB [Suspect]
     Active Substance: GLOFITAMAB
     Indication: Mantle cell lymphoma
     Dosage: LAST ADMINISTRATION: 03/JAN/2024
     Route: 042
     Dates: start: 20231213
  2. OBINUTUZUMAB [Suspect]
     Active Substance: OBINUTUZUMAB
     Indication: Mantle cell lymphoma
     Route: 042
     Dates: start: 20231206
  3. OBINUTUZUMAB [Suspect]
     Active Substance: OBINUTUZUMAB
     Route: 042
     Dates: start: 20231212
  4. SULFAMETHOXAZOLE\TRIMETHOPRIM [Concomitant]
     Active Substance: SULFAMETHOXAZOLE\TRIMETHOPRIM
     Dosage: 2 CP
  5. PANTOPRAZOLE [Concomitant]
     Active Substance: PANTOPRAZOLE
     Dosage: 1 CP DAILY
  6. PREDNISONE [Concomitant]
     Active Substance: PREDNISONE
     Dosage: DAILY
  7. PREDNISONE [Concomitant]
     Active Substance: PREDNISONE
  8. FUROSEMIDE [Concomitant]
     Active Substance: FUROSEMIDE
     Dosage: FREQUENCY TEXT:AS NEEDED
     Route: 042
  9. PIPERACILLIN AND TAZOBACTAM [Concomitant]
     Active Substance: PIPERACILLIN SODIUM\TAZOBACTAM SODIUM
     Route: 042
  10. ENOXAPARIN [Concomitant]
     Active Substance: ENOXAPARIN
     Dosage: 6.000 UI FL SC DAILY
     Route: 058
  11. ENOXAPARIN [Concomitant]
     Active Substance: ENOXAPARIN
     Dosage: 4.000 UI FL SC DAILY
     Route: 058
  12. FLUCONAZOLE [Concomitant]
     Active Substance: FLUCONAZOLE
  13. FILGRASTIM [Concomitant]
     Active Substance: FILGRASTIM
     Dosage: 30 MUI
     Route: 058

REACTIONS (4)
  - Cytokine release syndrome [Recovered/Resolved]
  - Pneumonia [Not Recovered/Not Resolved]
  - Influenza [Not Recovered/Not Resolved]
  - Drug ineffective [Unknown]

NARRATIVE: CASE EVENT DATE: 20240105
